FAERS Safety Report 9152653 (Version 1)
Quarter: 2013Q1

REPORT INFORMATION
  Report Type: Spontaneous
  Country: US (occurrence: US)
  Receive Date: 20130308
  Receipt Date: 20130308
  Transmission Date: 20140127
  Serious: No
  Sender: FDA-Public Use
  Company Number: US-ASTRAZENECA-2013SE15162

PATIENT
  Age: 56 Year
  Sex: Male
  Weight: 93 kg

DRUGS (12)
  1. NEXIUM [Suspect]
     Indication: GASTROOESOPHAGEAL REFLUX DISEASE
     Route: 048
  2. PRILOSEC DELAYED-RELEASE CAPSULES [Suspect]
     Indication: GASTRIC ULCER
     Route: 048
     Dates: start: 1993
  3. PRILOSEC DELAYED-RELEASE CAPSULES [Suspect]
     Indication: HIATUS HERNIA
     Route: 048
     Dates: start: 1993
  4. PRILOSEC DELAYED-RELEASE CAPSULES [Suspect]
     Indication: GASTROOESOPHAGEAL REFLUX DISEASE
     Route: 048
     Dates: start: 1993
  5. PRILOSEC DELAYED-RELEASE CAPSULES [Suspect]
     Indication: GASTROOESOPHAGEAL REFLUX DISEASE
     Route: 048
     Dates: start: 1993
  6. CRESTOR [Suspect]
     Route: 048
     Dates: start: 201209
  7. CRESTOR [Suspect]
     Dosage: SPLITS THE CRESTOR IN HALF AND ONLY TAKES IT TWICE A WEEK
     Route: 048
  8. PROTONIX [Suspect]
     Route: 065
  9. NORCO [Concomitant]
  10. CLONAZEPAM [Concomitant]
  11. CARAFATE [Concomitant]
  12. BACLOFEN [Concomitant]

REACTIONS (9)
  - Colitis [Unknown]
  - Arthritis [Unknown]
  - Levator syndrome [Unknown]
  - Proctalgia [Unknown]
  - Abdominal discomfort [Unknown]
  - Muscular weakness [Unknown]
  - Intentional drug misuse [Unknown]
  - Drug dose omission [Unknown]
  - Drug ineffective [Unknown]
